FAERS Safety Report 12615544 (Version 8)
Quarter: 2018Q2

REPORT INFORMATION
  Report Type: Report from Study
  Country: JP (occurrence: JP)
  Receive Date: 20160802
  Receipt Date: 20180611
  Transmission Date: 20180711
  Serious: Yes (Hospitalization, Other)
  Sender: FDA-Public Use
  Company Number: JP-INCYTE CORPORATION-2016IN004742

PATIENT

DRUGS (9)
  1. JAKAVI [Suspect]
     Active Substance: RUXOLITINIB
     Dosage: 5 MG, BID
     Route: 048
     Dates: start: 20160406, end: 20160426
  2. JAKAVI [Suspect]
     Active Substance: RUXOLITINIB
     Dosage: 10 MG, BID
     Route: 048
     Dates: start: 20160427, end: 20160602
  3. JAKAVI [Suspect]
     Active Substance: RUXOLITINIB
     Dosage: 10 MG, BID
     Route: 048
     Dates: start: 20161214, end: 20180110
  4. NESP [Concomitant]
     Active Substance: DARBEPOETIN ALFA
     Indication: MYELOFIBROSIS
     Dosage: 120 UG, QD
     Route: 065
     Dates: start: 20170208
  5. JAKAVI [Suspect]
     Active Substance: RUXOLITINIB
     Indication: MYELOFIBROSIS
     Dosage: 10 MG, BID
     Route: 048
     Dates: start: 20160128, end: 20160216
  6. JAKAVI [Suspect]
     Active Substance: RUXOLITINIB
     Dosage: 10 MG, QD
     Route: 048
     Dates: start: 20161213, end: 20161213
  7. JAKAVI [Suspect]
     Active Substance: RUXOLITINIB
     Dosage: 5 MG, BID
     Route: 048
     Dates: start: 20160622, end: 20160719
  8. JAKAVI [Suspect]
     Active Substance: RUXOLITINIB
     Dosage: 10 MG, BID
     Route: 048
     Dates: start: 20160720, end: 20161211
  9. JAKAVI [Suspect]
     Active Substance: RUXOLITINIB
     Dosage: 5 MG, BID
     Route: 048
     Dates: start: 20160217, end: 20160331

REACTIONS (10)
  - Anaemia [Recovering/Resolving]
  - Bile duct stone [Recovered/Resolved]
  - Gastrointestinal haemorrhage [Recovered/Resolved]
  - Pseudomembranous colitis [Recovered/Resolved]
  - Haematemesis [Recovered/Resolved]
  - Myelofibrosis [Not Recovered/Not Resolved]
  - Hepatic function abnormal [Recovered/Resolved]
  - Platelet count decreased [Recovering/Resolving]
  - Cholangitis [Recovered/Resolved]
  - Gastric haemorrhage [Recovered/Resolved]

NARRATIVE: CASE EVENT DATE: 20160217
